FAERS Safety Report 8333752 (Version 2)
Quarter: 2013Q2

REPORT INFORMATION
  Report Type: Spontaneous
  Country: US (occurrence: None)
  Receive Date: 20111130
  Receipt Date: 20120531
  Transmission Date: 20140414
  Serious: Yes (Hospitalization)
  Sender: FDA-Public Use
  Company Number: US201108009070

PATIENT
  Age: 83 Year
  Sex: Female

DRUGS (5)
  1. BYETTA [Suspect]
     Indication: TYPE 2 DIABETES MELLITUS
     Dosage: 5 UG, BID, SUBCUTANEOUS
     Route: 058
     Dates: start: 2011, end: 201107
  2. NOVOLOG [Concomitant]
  3. GLIPIZIDE (GLIPIZIDE) [Concomitant]
  4. NEUROTIN /00949202/ (ACETYLCARNITINE HYDROCHLORIDE) [Concomitant]
  5. LOSARTAN POTASSIUM [Concomitant]

REACTIONS (4)
  - RENAL FAILURE [None]
  - DEHYDRATION [None]
  - VOMITING [None]
  - DIARRHOEA [None]
